FAERS Safety Report 14299423 (Version 1)
Quarter: 2017Q4

REPORT INFORMATION
  Report Type: Report from Study
  Country: CA (occurrence: CA)
  Receive Date: 20171219
  Receipt Date: 20171219
  Transmission Date: 20180321
  Serious: Yes (Hospitalization, Other)
  Sender: FDA-Public Use
  Company Number: CA-ROCHE-1659599

PATIENT
  Age: 51 Year
  Sex: Male

DRUGS (11)
  1. ACETAMINOPHEN. [Concomitant]
     Active Substance: ACETAMINOPHEN
     Indication: PREMEDICATION
     Route: 048
     Dates: start: 20151022, end: 20161031
  2. FOLIC ACID. [Concomitant]
     Active Substance: FOLIC ACID
  3. SSZ [Concomitant]
     Active Substance: SULFASALAZINE
  4. XARELTO [Concomitant]
     Active Substance: RIVAROXABAN
  5. METHOTREXATE. [Concomitant]
     Active Substance: METHOTREXATE
  6. RITUXAN [Suspect]
     Active Substance: RITUXIMAB
     Indication: RHEUMATOID ARTHRITIS
     Dosage: HE RECEIVED RITUXIMAB INFUSION ON 31/OCT/2016
     Route: 042
     Dates: start: 20151022
  7. ACETAMINOPHEN. [Concomitant]
     Active Substance: ACETAMINOPHEN
     Route: 048
     Dates: start: 20161031
  8. METHYLPREDNISOLONE. [Concomitant]
     Active Substance: METHYLPREDNISOLONE
     Indication: PREMEDICATION
     Route: 042
     Dates: start: 20151022
  9. DIPHENHYDRAMINE. [Concomitant]
     Active Substance: DIPHENHYDRAMINE
     Indication: PREMEDICATION
     Route: 048
     Dates: start: 20151022
  10. PLAQUENIL [Concomitant]
     Active Substance: HYDROXYCHLOROQUINE SULFATE
  11. BISOPROLOL [Concomitant]
     Active Substance: BISOPROLOL

REACTIONS (12)
  - Necrotising fasciitis [Recovered/Resolved]
  - Renal impairment [Unknown]
  - Blood uric acid increased [Not Recovered/Not Resolved]
  - Pneumonia [Unknown]
  - Renal disorder [Unknown]
  - Musculoskeletal stiffness [Unknown]
  - Oropharyngeal pain [Unknown]
  - Pain in extremity [Not Recovered/Not Resolved]
  - Rheumatoid arthritis [Recovered/Resolved]
  - Splinter [Unknown]
  - Blood pressure increased [Unknown]
  - Back pain [Unknown]

NARRATIVE: CASE EVENT DATE: 20151109
